FAERS Safety Report 7956254-8 (Version None)
Quarter: 2011Q4

REPORT INFORMATION
  Report Type: 
  Country: None (occurrence: None)
  Receive Date: 20111205
  Receipt Date: 20111124
  Transmission Date: 20120403
  Serious: Yes (Hospitalization)
  Sender: FDA-Public Use
  Company Number: US-RANBAXY-2011US-50800

PATIENT
  Age: 30 Year
  Sex: Female

DRUGS (2)
  1. NAPROXEN [Suspect]
  2. NAPROXEN [Suspect]
     Indication: ARTHRALGIA
     Dosage: UNK, UNK
     Route: 065

REACTIONS (4)
  - CHOLESTASIS [None]
  - LIVER INJURY [None]
  - JAUNDICE [None]
  - ANTINUCLEAR ANTIBODY POSITIVE [None]
